FAERS Safety Report 9460696 (Version 1)
Quarter: 2013Q3

REPORT INFORMATION
  Report Type: Spontaneous
  Country: GB (occurrence: None)
  Receive Date: 20130813
  Receipt Date: 20130813
  Transmission Date: 20140515
  Serious: Yes (Hospitalization, Other)
  Sender: FDA-Public Use
  Company Number: 1833034

PATIENT
  Age: 14 Year
  Sex: Male

DRUGS (37)
  1. VINCRISTINE SULFATE [Suspect]
     Indication: NEOPLASM MALIGNANT
     Dates: start: 20130215
  2. DOXORUBICIN HYDROCHLORIDE [Suspect]
     Indication: NEOPLASM MALIGNANT
     Dosage: 48 MG MILLIGRAM(S), UNKNOWN, INTRAVAVENOUS (NOT OTHERWISE SPECIFIED)
     Route: 042
     Dates: start: 20121103
  3. DOXORUBICIN HYDROCHLORIDE [Suspect]
     Indication: NEOPLASM MALIGNANT
     Dosage: 48 MG MILLIGRAM(S), UNKNOWN, INTRAVAVENOUS (NOT OTHERWISE SPECIFIED)
     Route: 042
     Dates: start: 20121103
  4. VINORELBINE [Suspect]
     Indication: PRODUCT USED FOR UNKNOWN INDICATION
     Dosage: 29 MG MILLIGRAM(S), UNKNOWN, INTRAVENOUS BOLUS
     Route: 040
     Dates: start: 20130531
  5. DOXORUBICIN [Suspect]
     Indication: NEOPLASM MALIGNANT
     Dosage: 48 MG MILLIGRAM(S), 1 DAY, INTRAVENOUS (NOT OTHERWISE SPECIFIED)
     Route: 042
     Dates: start: 20121102, end: 20121102
  6. DOXORUBICIN [Suspect]
     Indication: NEOPLASM MALIGNANT
     Dosage: 48 MG MILLIGRAM(S), 1 DAY, INTRAVENOUS (NOT OTHERWISE SPECIFIED)
     Route: 042
     Dates: start: 20121102, end: 20121102
  7. IFOSFAMIDE [Suspect]
     Indication: NEOPLASM MALIGNANT
     Dosage: 4650 MG MILLIGRAM(S), UNKNOWN, INTRAVENOUS (NOT OTHERWISE SPECIFIED)
     Route: 042
     Dates: start: 20121102
  8. IFOSFAMIDE [Suspect]
     Indication: NEOPLASM MALIGNANT
     Dosage: 4650 MG MILLIGRAM(S), UNKNOWN, INTRAVENOUS (NOT OTHERWISE SPECIFIED)
     Route: 042
     Dates: start: 20121102
  9. IFOSFAMIDE [Suspect]
     Indication: NEOPLASM MALIGNANT
     Dosage: 4650 MG MILLIGRAM(S), UNKNOWN, INTRAVENOUS
     Route: 042
     Dates: start: 20121102
  10. IFOSFAMIDE [Suspect]
     Indication: NEOPLASM MALIGNANT
     Dosage: 4650 MG MILLIGRAM(S), UNKNOWN, INTRAVENOUS
     Route: 042
     Dates: start: 20121102
  11. IFOSFAMIDE [Suspect]
     Indication: NEOPLASM MALIGNANT
     Dates: start: 20130215
  12. CYCLOPHOSPHAMIDE [Suspect]
     Indication: NEOPLASM MALIGNANT
     Dosage: 29 MG MILLIGRAM(S), 1 DAY, ORAL
     Route: 048
     Dates: start: 20130531, end: 20130701
  13. VINCRISTINE [Suspect]
     Indication: NEOPLASM MALIGNANT
     Dosage: 2 MG MILLIGRAM(S), 1 CYCLICAL, INTRAVENOUS BOLUS
     Route: 040
     Dates: start: 20121123
  14. VINCRISTINE [Suspect]
     Indication: NEOPLASM MALIGNANT
     Dosage: 2 MG MILLIGRAM(S), 1 CYCLICAL, INTRAVENOUS BOLUS
     Route: 040
     Dates: start: 20121123
  15. VINCRISTINE [Suspect]
     Indication: NEOPLASM MALIGNANT
     Dosage: 2 MG MILLIGRAM(S), UNKNOWN, INTRAVENOUS BOLUS
     Route: 040
     Dates: start: 20121102
  16. VINCRISTINE [Suspect]
     Indication: NEOPLASM MALIGNANT
     Dosage: 2 MG MILLIGRAM(S), UNKNOWN, INTRAVENOUS BOLUS
     Route: 040
     Dates: start: 20121102
  17. DACTINOMYCIN [Suspect]
     Indication: NEOPLASM MALIGNANT
     Dosage: 2 MG MILLIGRAM(S), UNKNOWN, INTRAVENOUS BOLUS
     Route: 040
     Dates: start: 20121102
  18. DACTINOMYCIN [Suspect]
     Indication: NEOPLASM MALIGNANT
     Dosage: 2 MG MILLIGRAM(S), UNKNOWN, INTRAVENOUS BOLUS
     Route: 040
     Dates: start: 20121102
  19. DACTINOMYCIN [Suspect]
     Indication: NEOPLASM MALIGNANT
     Dates: start: 20130215
  20. LACTULOSE [Concomitant]
  21. MACROGOL [Concomitant]
  22. POTASSIUM CHLORIDE [Concomitant]
  23. SODIUM BICARBONATE [Concomitant]
  24. SODIUM CHLORIDE [Concomitant]
  25. SENNOSIDE A+B [Concomitant]
  26. ONDANSETRON [Concomitant]
  27. CYCLIZINE [Concomitant]
  28. PARACETAMOL [Concomitant]
  29. MORPHINE SULFATE [Concomitant]
  30. BISACODYL [Concomitant]
  31. GABAPENTIN [Concomitant]
  32. CETIRIZINE [Concomitant]
  33. ENOXOLONE [Concomitant]
  34. HYALURONATE SODIUM [Concomitant]
  35. POLYVIDONE [Concomitant]
  36. SULFAMETHOXAZOLE [Concomitant]
  37. TRIMETHOPRIM [Concomitant]

REACTIONS (11)
  - Febrile neutropenia [None]
  - Headache [None]
  - Sepsis [None]
  - Pyrexia [None]
  - Tachycardia [None]
  - Chills [None]
  - Haemoglobin decreased [None]
  - White blood cell count decreased [None]
  - Platelet count decreased [None]
  - Toxicity to various agents [None]
  - Multi-organ disorder [None]
